FAERS Safety Report 23013212 (Version 2)
Quarter: 2023Q4

REPORT INFORMATION
  Report Type: Spontaneous
  Country: US (occurrence: US)
  Receive Date: 20230930
  Receipt Date: 20231004
  Transmission Date: 20240110
  Serious: Yes (Hospitalization, Other)
  Sender: FDA-Public Use
  Company Number: US-BAXTER-2023BAX031948

PATIENT
  Sex: Male

DRUGS (4)
  1. BUPIVACAINE [Suspect]
     Active Substance: BUPIVACAINE
     Indication: Anaesthesia
     Dosage: 10 ML OF 0.25% (25MG)
  2. EPINEPHRINE [Suspect]
     Active Substance: EPINEPHRINE
     Indication: Anaesthesia
     Dosage: 1:200,000 (50MCG)
  3. PROPOFOL [Concomitant]
     Active Substance: PROPOFOL
     Indication: Sedation
  4. PROPOFOL [Concomitant]
     Active Substance: PROPOFOL
     Indication: Endotracheal intubation

REACTIONS (3)
  - Product administration error [Recovered/Resolved]
  - Local anaesthetic systemic toxicity [Recovered/Resolved]
  - Blood pressure decreased [Recovered/Resolved]
